FAERS Safety Report 9825260 (Version 1)
Quarter: 2014Q1

REPORT INFORMATION
  Report Type: Spontaneous
  Country: US (occurrence: US)
  Receive Date: 20140117
  Receipt Date: 20140117
  Transmission Date: 20141002
  Serious: Yes (Other)
  Sender: FDA-Public Use
  Company Number: PHHY2014US002591

PATIENT
  Age: 46 Year
  Sex: Female

DRUGS (10)
  1. LETROZOLE [Suspect]
     Indication: BREAST CANCER METASTATIC
  2. ZOLEDRONIC ACID [Suspect]
     Indication: METASTASES TO BONE
  3. TAMOXIFEN [Concomitant]
  4. CAPECITABINE [Concomitant]
  5. FASLODEX [Concomitant]
     Indication: BREAST CANCER METASTATIC
  6. AROMASIN [Concomitant]
  7. GABAPENTIN [Concomitant]
     Indication: NEURALGIA
  8. CORTICOSTEROIDS [Concomitant]
     Indication: SUPPORTIVE CARE
  9. ANTIEMETICS [Concomitant]
     Indication: SUPPORTIVE CARE
  10. CARBOPLATIN [Concomitant]

REACTIONS (9)
  - Diplopia [Unknown]
  - Paralysis [Unknown]
  - Breast mass [Unknown]
  - Lymphadenopathy [Unknown]
  - Metastases to liver [Unknown]
  - Metastases to bone [Unknown]
  - Paraesthesia [Unknown]
  - Breast cancer [Unknown]
  - Malignant neoplasm progression [Unknown]
